FAERS Safety Report 8209216-X (Version None)
Quarter: 2012Q1

REPORT INFORMATION
  Report Type: 
  Country: None (occurrence: None)
  Receive Date: 20120314
  Receipt Date: 20120309
  Transmission Date: 20120608
  Serious: Yes (Death, Hospitalization, Other)
  Sender: FDA-Public Use
  Company Number: PHHY2012FR020503

PATIENT
  Sex: Female

DRUGS (7)
  1. FENOFIBRATE [Suspect]
     Dosage: 200 MG, DAILY
     Route: 048
  2. BISOPROLOL FUMARATE AND HYDROCHLOROTHIAZIDE [Suspect]
     Dosage: 1 DF, DAILY1
     Route: 048
     Dates: end: 20110226
  3. CANDESARTAN CILEXETIL AND HYDROCHLOROTHIAZIDE [Suspect]
     Dosage: 1 DF, DAILY
     Route: 048
     Dates: end: 20110226
  4. CITRAFLEET [Suspect]
     Dosage: 1 DF, UNK
     Dates: start: 20110222
  5. METFORMIN HYDROCHLORIDE [Suspect]
     Dosage: 2 DF (1000 MG MET AND 50 MG VILDA), DAILY
     Route: 048
     Dates: end: 20110226
  6. OMEPRAZOLE [Suspect]
     Dosage: 20 MG, DAILY
     Dates: end: 20110226
  7. ZOLPIDEM [Suspect]
     Dosage: UNK
     Dates: start: 20110202, end: 20110226

REACTIONS (15)
  - RENAL FAILURE ACUTE [None]
  - VOMITING [None]
  - MULTI-ORGAN FAILURE [None]
  - HIATUS HERNIA [None]
  - ANURIA [None]
  - POLYP [None]
  - RESPIRATORY ARREST [None]
  - DIVERTICULUM [None]
  - HAEMODYNAMIC INSTABILITY [None]
  - BLOOD PRESSURE INCREASED [None]
  - METABOLIC ACIDOSIS [None]
  - GASTRITIS [None]
  - ABDOMINAL PAIN [None]
  - DIARRHOEA [None]
  - CARDIAC ARREST [None]
